FAERS Safety Report 4789662-7 (Version None)
Quarter: 2005Q4

REPORT INFORMATION
  Report Type: 
  Country: None (occurrence: None)
  Receive Date: 20051006
  Receipt Date: 20050727
  Transmission Date: 20060501
  Serious: Yes (Hospitalization)
  Sender: FDA-Public Use
  Company Number: 2005CG01321

PATIENT
  Age: 21715 Day
  Sex: Male

DRUGS (9)
  1. CASODEX [Suspect]
     Indication: PROSTATE CANCER
     Route: 048
     Dates: start: 20050301
  2. NEXIUM [Suspect]
     Route: 048
     Dates: start: 20050301
  3. ZOLADEX [Suspect]
     Indication: PROSTATE CANCER
     Route: 058
     Dates: start: 20050301
  4. FLUCONAZOLE [Suspect]
     Indication: MUCOSAL INFLAMMATION
     Route: 048
     Dates: start: 20050502
  5. PREDNISOLONE [Suspect]
     Route: 042
     Dates: start: 20050301
  6. TAXOTERE [Suspect]
     Indication: PROSTATE CANCER
     Route: 042
     Dates: start: 20050301
  7. ZOMETA [Suspect]
     Route: 042
     Dates: start: 20050301
  8. SKENAN [Suspect]
     Route: 048
     Dates: start: 20050301
  9. ZELITREX [Suspect]
     Indication: MUCOSAL INFLAMMATION
     Dates: start: 20050502

REACTIONS (9)
  - BLOOD ALKALINE PHOSPHATASE INCREASED [None]
  - BLOOD LACTATE DEHYDROGENASE INCREASED [None]
  - C-REACTIVE PROTEIN INCREASED [None]
  - DERMATITIS EXFOLIATIVE [None]
  - GAMMA-GLUTAMYLTRANSFERASE INCREASED [None]
  - HAEMOGLOBIN DECREASED [None]
  - PROSTATIC SPECIFIC ANTIGEN INCREASED [None]
  - PSORIASIS [None]
  - RED BLOOD CELL SEDIMENTATION RATE INCREASED [None]
